FAERS Safety Report 6539280-5 (Version None)
Quarter: 2010Q1

REPORT INFORMATION
  Report Type: 
  Country: None (occurrence: None)
  Receive Date: 20100112
  Receipt Date: 20100106
  Transmission Date: 20100710
  Serious: Yes (Death)
  Sender: FDA-Public Use
  Company Number: KADN20100006

PATIENT
  Age: 40 Year
  Sex: Male

DRUGS (1)
  1. KADIAN [Suspect]
     Indication: PAIN
     Dosage: 20 MG, 2 IN 1 D, PER ORAL
     Route: 048
     Dates: start: 20091201, end: 20091226

REACTIONS (1)
  - DEATH [None]
